FAERS Safety Report 8586647-X (Version None)
Quarter: 2012Q3

REPORT INFORMATION
  Report Type: 
  Country: None (occurrence: None)
  Receive Date: 20120810
  Receipt Date: 20120803
  Transmission Date: 20120928
  Serious: Yes (Life-Threatening, Disabling, Other)
  Sender: FDA-Public Use
  Company Number: US-JNJFOC-20120703530

PATIENT
  Sex: Female

DRUGS (2)
  1. DURAGESIC-100 [Suspect]
     Indication: PAIN
     Route: 062
     Dates: start: 20100101, end: 20100101
  2. DURAGESIC-100 [Suspect]
     Route: 062
     Dates: start: 20120709, end: 20120711

REACTIONS (11)
  - BLINDNESS [None]
  - LOSS OF CONSCIOUSNESS [None]
  - DYSSTASIA [None]
  - NAUSEA [None]
  - IMPAIRED WORK ABILITY [None]
  - PAIN [None]
  - DIZZINESS [None]
  - FALL [None]
  - COLOUR BLINDNESS ACQUIRED [None]
  - MEMORY IMPAIRMENT [None]
  - MOOD ALTERED [None]
